FAERS Safety Report 8815870 (Version 1)
Quarter: 2012Q4

REPORT INFORMATION
  Report Type: Report from Study
  Country: CA (occurrence: CA)
  Receive Date: 20120928
  Receipt Date: 20120928
  Transmission Date: 20130627
  Serious: Yes (Hospitalization)
  Sender: FDA-Public Use
  Company Number: CA-ROCHE-1138530

PATIENT
  Age: 55 Year
  Sex: Female

DRUGS (7)
  1. ROACTEMRA [Suspect]
     Indication: RHEUMATOID ARTHRITIS
     Route: 042
     Dates: start: 20120130
  2. LYRICA [Concomitant]
  3. FOSAMAX [Concomitant]
  4. LOSEC (CANADA) [Concomitant]
  5. RALIVIA [Concomitant]
  6. ULTRADOL [Concomitant]
  7. FLUOXETINE [Concomitant]

REACTIONS (2)
  - Femur fracture [Not Recovered/Not Resolved]
  - Fall [Recovered/Resolved]
